FAERS Safety Report 6124647-X (Version None)
Quarter: 2009Q1

REPORT INFORMATION
  Report Type: 
  Country: None (occurrence: None)
  Receive Date: 20090319
  Receipt Date: 20090313
  Transmission Date: 20090719
  Serious: Yes (Hospitalization)
  Sender: FDA-Public Use
  Company Number: B0564905A

PATIENT
  Age: 24 Year
  Sex: Male

DRUGS (1)
  1. RELENZA [Suspect]
     Indication: INFLUENZA
     Dosage: 10MG PER DAY
     Route: 055
     Dates: start: 20090311, end: 20090311

REACTIONS (5)
  - BLOOD PRESSURE DECREASED [None]
  - COLD SWEAT [None]
  - CONVULSION [None]
  - FEELING ABNORMAL [None]
  - HEART RATE DECREASED [None]
